FAERS Safety Report 9123897 (Version 1)
Quarter: 2013Q1

REPORT INFORMATION
  Report Type: Spontaneous
  Country: NL (occurrence: NL)
  Receive Date: 20130227
  Receipt Date: 20130227
  Transmission Date: 20140127
  Serious: Yes (Hospitalization)
  Sender: FDA-Public Use
  Company Number: NL-BRISTOL-MYERS SQUIBB COMPANY-17408220

PATIENT
  Age: 71 Year
  Sex: Male

DRUGS (12)
  1. MITOMYCIN-C [Suspect]
     Indication: BLADDER CANCER
     Route: 043
     Dates: start: 20121109
  2. MOMETASONE [Concomitant]
  3. GABAPENTIN [Concomitant]
  4. DUTASTERIDE [Concomitant]
  5. VASELINE [Concomitant]
  6. TRAMADOL [Concomitant]
  7. OMEPRAZOLE [Concomitant]
  8. DICLOFENAC [Concomitant]
  9. BISOPROLOL [Concomitant]
  10. DIAZEPAM [Concomitant]
  11. ACENOCOUMAROL [Concomitant]
  12. TAMSULOSIN [Concomitant]

REACTIONS (2)
  - Purpura [Recovering/Resolving]
  - Arthropathy [Recovering/Resolving]
